FAERS Safety Report 7732032-X (Version None)
Quarter: 2011Q3

REPORT INFORMATION
  Report Type: 
  Country: None (occurrence: None)
  Receive Date: 20110906
  Receipt Date: 20110727
  Transmission Date: 20111222
  Serious: No
  Sender: FDA-Public Use
  Company Number: US-AMGEN-USASP2011038146

PATIENT
  Age: 62 Year
  Sex: Female

DRUGS (6)
  1. CALCIUM CARBONATE [Concomitant]
     Dosage: UNK
  2. HERBALS NOS W/MINERALS NOS/VITAMINS NOS [Concomitant]
     Dosage: UNK
  3. VITAMIN D [Concomitant]
     Dosage: UNK
  4. VITAMIN A                          /00056001/ [Concomitant]
     Dosage: UNK
  5. PROLIA [Suspect]
     Indication: OSTEOPOROSIS POSTMENOPAUSAL
     Dosage: 60 MG, UNK
     Dates: start: 20110401
  6. ASPIRIN [Concomitant]
     Dosage: UNK

REACTIONS (4)
  - NAUSEA [None]
  - ABDOMINAL PAIN [None]
  - ABDOMINAL PAIN UPPER [None]
  - BLOOD CHOLESTEROL ABNORMAL [None]
